FAERS Safety Report 22319223 (Version 1)
Quarter: 2023Q2

REPORT INFORMATION
  Report Type: Spontaneous
  Country: NL (occurrence: NL)
  Receive Date: 20230515
  Receipt Date: 20230515
  Transmission Date: 20230721
  Serious: Yes (Life-Threatening, Hospitalization)
  Sender: FDA-Public Use
  Company Number: None

PATIENT
  Age: 84 Year
  Sex: Female

DRUGS (2)
  1. PAROXETINE [Suspect]
     Active Substance: PAROXETINE
     Indication: Depression
     Dosage: 10 MILLIGRAM DAILY; 1 X PER DAY 1 PIECE, PAROXETINE TABLET 10MG / BRAND NAME NOT SPECIFIED,
     Route: 065
     Dates: start: 20230413, end: 20230419
  2. LORAZEPAM [Concomitant]
     Active Substance: LORAZEPAM
     Indication: Product used for unknown indication
     Dosage: 2,5 MG (MILLIGRAM), LORAZEPAM TABLET 2,5MG / BRAND NAME NOT SPECIFIED,
     Route: 065

REACTIONS (1)
  - Suicide attempt [Recovering/Resolving]
